FAERS Safety Report 8049329-9 (Version None)
Quarter: 2012Q1

REPORT INFORMATION
  Report Type: 
  Country: None (occurrence: None)
  Receive Date: 20120117
  Receipt Date: 20120113
  Transmission Date: 20120608
  Serious: Yes (Life-Threatening, Hospitalization)
  Sender: FDA-Public Use
  Company Number: CN-ROCHE-1030096

PATIENT
  Age: 42 Year
  Sex: Male

DRUGS (1)
  1. MYCOPHENOLATE MOFETIL (CELLCEPT) [Suspect]
     Indication: NEPHROTIC SYNDROME
     Route: 048

REACTIONS (7)
  - BLOOD CREATININE INCREASED [None]
  - PNEUMOCYSTIS JIROVECI PNEUMONIA [None]
  - DECREASED APPETITE [None]
  - RENAL IMPAIRMENT [None]
  - RENAL NEOPLASM [None]
  - INFECTIVE GLOSSITIS [None]
  - GALLBLADDER POLYP [None]
